FAERS Safety Report 17781223 (Version 1)
Quarter: 2020Q2

REPORT INFORMATION
  Report Type: Spontaneous
  Country: US (occurrence: US)
  Receive Date: 20200514
  Receipt Date: 20200514
  Transmission Date: 20200714
  Serious: No
  Sender: FDA-Public Use
  Company Number: US-TORRENT-00009135

PATIENT
  Age: 82 Year
  Sex: Female
  Weight: 44 kg

DRUGS (1)
  1. LOSARTAN AND HYDROCHLOROTHIAZIDE [Suspect]
     Active Substance: HYDROCHLOROTHIAZIDE\LOSARTAN POTASSIUM
     Indication: HYPERTENSION
     Dosage: UNKNOWN
     Dates: start: 201907, end: 201907

REACTIONS (6)
  - Dysstasia [Unknown]
  - Dysuria [Recovering/Resolving]
  - Nausea [Not Recovered/Not Resolved]
  - Bladder disorder [Recovering/Resolving]
  - Dyspepsia [Recovered/Resolved]
  - Malaise [Recovering/Resolving]

NARRATIVE: CASE EVENT DATE: 201907
